FAERS Safety Report 6334563-6 (Version None)
Quarter: 2009Q3

REPORT INFORMATION
  Report Type: 
  Country: None (occurrence: None)
  Receive Date: 20090831
  Receipt Date: 20090825
  Transmission Date: 20100115
  Serious: Yes (Other)
  Sender: FDA-Public Use
  Company Number: PHHY2009FI35697

PATIENT
  Age: 60 Year
  Sex: Male

DRUGS (1)
  1. EXFORGE [Suspect]

REACTIONS (2)
  - LOSS OF CONSCIOUSNESS [None]
  - NEOPLASM [None]
